FAERS Safety Report 23684095 (Version 6)
Quarter: 2025Q1

REPORT INFORMATION
  Report Type: Spontaneous
  Country: PT (occurrence: PT)
  Receive Date: 20240328
  Receipt Date: 20250320
  Transmission Date: 20250409
  Serious: Yes (Death, Other)
  Sender: PFIZER
  Company Number: PT-ABBVIE-5640694

PATIENT

DRUGS (141)
  1. ETANERCEPT [Suspect]
     Active Substance: ETANERCEPT
     Route: 065
  2. EXEMESTANE [Suspect]
     Active Substance: EXEMESTANE
     Route: 065
  3. DONEPEZIL HYDROCHLORIDE [Suspect]
     Active Substance: DONEPEZIL HYDROCHLORIDE
     Route: 048
  4. ZOLEDRONIC ACID [Suspect]
     Active Substance: ZOLEDRONIC ACID
     Route: 065
  5. NITROGLYCERIN [Suspect]
     Active Substance: NITROGLYCERIN
     Route: 065
  6. NITROGLYCERIN [Suspect]
     Active Substance: NITROGLYCERIN
     Route: 065
  7. ZOMETA [Suspect]
     Active Substance: ZOLEDRONIC ACID
     Route: 065
  8. ZOMETA [Suspect]
     Active Substance: ZOLEDRONIC ACID
     Route: 065
  9. GINKGO [Suspect]
     Active Substance: GINKGO
     Route: 065
  10. GINKGO [Suspect]
     Active Substance: GINKGO
     Route: 065
  11. GINKGO [Suspect]
     Active Substance: GINKGO
     Route: 065
  12. XYZAL [Suspect]
     Active Substance: LEVOCETIRIZINE DIHYDROCHLORIDE
     Route: 065
  13. XYZAL [Suspect]
     Active Substance: LEVOCETIRIZINE DIHYDROCHLORIDE
     Route: 065
  14. IODINE [Suspect]
     Active Substance: IODINE
     Route: 065
  15. TAMSULOSIN HYDROCHLORIDE [Suspect]
     Active Substance: TAMSULOSIN HYDROCHLORIDE
     Route: 065
  16. TAMSULOSIN HYDROCHLORIDE [Suspect]
     Active Substance: TAMSULOSIN HYDROCHLORIDE
     Route: 065
  17. VENLAFAXINE HCL [Suspect]
     Active Substance: VENLAFAXINE HYDROCHLORIDE
     Route: 065
  18. VENLAFAXINE HCL [Suspect]
     Active Substance: VENLAFAXINE HYDROCHLORIDE
     Route: 065
  19. VENLAFAXINE HCL [Suspect]
     Active Substance: VENLAFAXINE HYDROCHLORIDE
     Route: 065
  20. ACETAMINOPHEN [Suspect]
     Active Substance: ACETAMINOPHEN
     Route: 065
  21. ACETAMINOPHEN [Suspect]
     Active Substance: ACETAMINOPHEN
     Route: 065
  22. RIBAVIRIN [Suspect]
     Active Substance: RIBAVIRIN
     Route: 065
  23. FLUVASTATIN [Suspect]
     Active Substance: FLUVASTATIN SODIUM
     Route: 065
  24. PROPRANOLOL [Suspect]
     Active Substance: PROPRANOLOL HYDROCHLORIDE
     Route: 065
  25. FLUOXETINE HYDROCHLORIDE [Interacting]
     Active Substance: FLUOXETINE HYDROCHLORIDE
     Route: 065
  26. ADALIMUMAB [Suspect]
     Active Substance: ADALIMUMAB
     Route: 058
  27. ADALIMUMAB [Suspect]
     Active Substance: ADALIMUMAB
     Route: 065
  28. HYDROCHLOROTHIAZIDE [Suspect]
     Active Substance: HYDROCHLOROTHIAZIDE
     Route: 065
  29. CODEINE SULFATE [Suspect]
     Active Substance: CODEINE SULFATE
     Route: 065
  30. NORFLOXACIN [Suspect]
     Active Substance: NORFLOXACIN
     Route: 065
  31. NORFLOXACIN [Suspect]
     Active Substance: NORFLOXACIN
     Route: 065
  32. LEDIPASVIR [Suspect]
     Active Substance: LEDIPASVIR
     Route: 065
  33. LEDIPASVIR [Suspect]
     Active Substance: LEDIPASVIR
     Route: 065
  34. CILAZAPRIL ANHYDROUS [Suspect]
     Active Substance: CILAZAPRIL ANHYDROUS
     Route: 065
  35. CILAZAPRIL ANHYDROUS [Suspect]
     Active Substance: CILAZAPRIL ANHYDROUS
     Route: 065
  36. PITAVASTATIN CALCIUM [Suspect]
     Active Substance: PITAVASTATIN CALCIUM
     Route: 065
  37. PRAVASTATIN SODIUM [Suspect]
     Active Substance: PRAVASTATIN SODIUM
     Route: 065
  38. PRAVASTATIN SODIUM [Suspect]
     Active Substance: PRAVASTATIN SODIUM
     Route: 065
  39. CELEBREX [Suspect]
     Active Substance: CELECOXIB
     Route: 065
  40. NILOTINIB HYDROCHLORIDE MONOHYDRATE [Suspect]
     Active Substance: NILOTINIB HYDROCHLORIDE MONOHYDRATE
     Route: 065
  41. CHOLECALCIFEROL [Suspect]
     Active Substance: CHOLECALCIFEROL
     Route: 065
  42. RABIES IMMUNE GLOBULIN (HUMAN) [Suspect]
     Active Substance: RABIES IMMUNE GLOBULIN (HUMAN)
     Route: 065
  43. RABIES IMMUNE GLOBULIN (HUMAN) [Suspect]
     Active Substance: RABIES IMMUNE GLOBULIN (HUMAN)
     Route: 065
  44. IBANDRONIC ACID [Suspect]
     Active Substance: IBANDRONIC ACID
     Route: 065
  45. IBANDRONIC ACID [Suspect]
     Active Substance: IBANDRONIC ACID
     Route: 065
  46. ANASTROZOLE [Suspect]
     Active Substance: ANASTROZOLE
     Route: 065
  47. ANASTROZOLE [Suspect]
     Active Substance: ANASTROZOLE
     Route: 065
  48. LETROZOLE [Suspect]
     Active Substance: LETROZOLE
     Route: 065
  49. DILTIAZEM [Suspect]
     Active Substance: DILTIAZEM
     Route: 065
  50. SIMVASTATIN [Suspect]
     Active Substance: SIMVASTATIN
     Route: 048
  51. SIMVASTATIN [Suspect]
     Active Substance: SIMVASTATIN
     Route: 065
  52. CODEINE [Suspect]
     Active Substance: CODEINE
     Route: 065
  53. SODIUM PICOSULFATE [Suspect]
     Active Substance: SODIUM PICOSULFATE
     Route: 062
  54. ATORVASTATIN CALCIUM [Suspect]
     Active Substance: ATORVASTATIN CALCIUM
     Route: 065
  55. ATORVASTATIN CALCIUM [Suspect]
     Active Substance: ATORVASTATIN CALCIUM
     Route: 065
  56. PREGABALIN [Suspect]
     Active Substance: PREGABALIN
     Route: 065
  57. PREGABALIN [Suspect]
     Active Substance: PREGABALIN
     Route: 065
  58. ESCHERICHIA COLI [Suspect]
     Active Substance: ESCHERICHIA COLI
     Route: 065
  59. ESCHERICHIA COLI [Suspect]
     Active Substance: ESCHERICHIA COLI
     Route: 065
  60. ALENDRONIC ACID [Suspect]
     Active Substance: ALENDRONIC ACID
     Route: 065
  61. TRAMADOL HYDROCHLORIDE [Interacting]
     Active Substance: TRAMADOL HYDROCHLORIDE
     Route: 065
  62. TRAMADOL HYDROCHLORIDE [Interacting]
     Active Substance: TRAMADOL HYDROCHLORIDE
     Route: 065
  63. INDOMETHACIN SODIUM [Suspect]
     Active Substance: INDOMETHACIN SODIUM
     Route: 065
  64. ALISKIREN HEMIFUMARATE [Suspect]
     Active Substance: ALISKIREN HEMIFUMARATE
     Route: 065
  65. HYDROMORPHONE HYDROCHLORIDE [Suspect]
     Active Substance: HYDROMORPHONE HYDROCHLORIDE
     Route: 048
  66. GLUCOSAMINE SULFATE [Suspect]
     Active Substance: GLUCOSAMINE SULFATE
     Route: 065
  67. EZETIMIBE [Suspect]
     Active Substance: EZETIMIBE
     Route: 048
  68. BRINZOLAMIDE [Suspect]
     Active Substance: BRINZOLAMIDE
     Route: 065
  69. MYCOPHENOLIC ACID [Suspect]
     Active Substance: MYCOPHENOLIC ACID
     Route: 065
  70. MYCOPHENOLIC ACID [Suspect]
     Active Substance: MYCOPHENOLIC ACID
     Route: 065
  71. SOFOSBUVIR [Suspect]
     Active Substance: SOFOSBUVIR
     Route: 065
  72. ESCITALOPRAM [Suspect]
     Active Substance: ESCITALOPRAM OXALATE
     Route: 048
  73. ENOXAPARIN SODIUM [Suspect]
     Active Substance: ENOXAPARIN SODIUM
     Route: 065
  74. ENOXAPARIN SODIUM [Suspect]
     Active Substance: ENOXAPARIN SODIUM
     Route: 065
  75. ESOMEPRAZOLE [Suspect]
     Active Substance: ESOMEPRAZOLE
     Route: 065
  76. BISOPROLOL [Suspect]
     Active Substance: BISOPROLOL
     Route: 065
  77. DOMPERIDONE MALEATE [Suspect]
     Active Substance: DOMPERIDONE MALEATE
     Route: 065
  78. PENTAZOCINE [Suspect]
     Active Substance: PENTAZOCINE
     Route: 048
  79. ACECLOFENAC [Suspect]
     Active Substance: ACECLOFENAC
     Route: 065
  80. PENTOXIFYLLINE [Suspect]
     Active Substance: PENTOXIFYLLINE
     Route: 065
  81. LEVOCETIRIZINE HYDROCHLORIDE [Suspect]
     Active Substance: LEVOCETIRIZINE HYDROCHLORIDE
     Route: 065
  82. DOCETAXEL [Suspect]
     Active Substance: DOCETAXEL
     Route: 065
  83. IMATINIB MESYLATE [Suspect]
     Active Substance: IMATINIB MESYLATE
     Route: 065
  84. IMATINIB MESYLATE [Suspect]
     Active Substance: IMATINIB MESYLATE
     Route: 065
  85. SERTRALINE HYDROCHLORIDE [Suspect]
     Active Substance: SERTRALINE HYDROCHLORIDE
     Route: 065
  86. SERTRALINE HYDROCHLORIDE [Suspect]
     Active Substance: SERTRALINE HYDROCHLORIDE
     Route: 065
  87. SERTRALINE HYDROCHLORIDE [Suspect]
     Active Substance: SERTRALINE HYDROCHLORIDE
     Route: 065
  88. TELMISARTAN [Suspect]
     Active Substance: TELMISARTAN
     Route: 065
  89. TELMISARTAN [Suspect]
     Active Substance: TELMISARTAN
     Route: 065
  90. AGOMELATINE [Suspect]
     Active Substance: AGOMELATINE
     Route: 065
  91. POTASSIUM IODIDE [Suspect]
     Active Substance: POTASSIUM IODIDE
     Route: 065
  92. BUPRENORPHINE HYDROCHLORIDE [Suspect]
     Active Substance: BUPRENORPHINE HYDROCHLORIDE
     Route: 062
  93. BUPRENORPHINE HYDROCHLORIDE [Suspect]
     Active Substance: BUPRENORPHINE HYDROCHLORIDE
     Route: 065
  94. NIMESULIDE [Suspect]
     Active Substance: NIMESULIDE
     Route: 065
  95. NIMESULIDE [Suspect]
     Active Substance: NIMESULIDE
     Route: 065
  96. DUTASTERIDE [Suspect]
     Active Substance: DUTASTERIDE
     Route: 065
  97. HYDROMORPHONE HYDROCHLORIDE [Suspect]
     Active Substance: HYDROMORPHONE HYDROCHLORIDE
     Route: 065
  98. HYDROMORPHONE HYDROCHLORIDE [Suspect]
     Active Substance: HYDROMORPHONE HYDROCHLORIDE
     Route: 065
  99. FENOFIBRATE [Suspect]
     Active Substance: FENOFIBRATE
     Route: 065
  100. ASPIRIN [Suspect]
     Active Substance: ASPIRIN
     Route: 065
  101. VORTIOXETINE [Interacting]
     Active Substance: VORTIOXETINE
     Route: 065
  102. VORTIOXETINE [Interacting]
     Active Substance: VORTIOXETINE
     Route: 065
  103. TOCILIZUMAB [Suspect]
     Active Substance: TOCILIZUMAB
     Route: 065
  104. HUMAN IMMUNOGLOBULIN G [Suspect]
     Active Substance: HUMAN IMMUNOGLOBULIN G
     Route: 065
  105. CODEINE PHOSPHATE [Suspect]
     Active Substance: CODEINE PHOSPHATE
     Route: 065
  106. ESCITALOPRAM OXALATE [Suspect]
     Active Substance: ESCITALOPRAM OXALATE
     Route: 048
  107. BISOPROLOL FUMARATE [Suspect]
     Active Substance: BISOPROLOL FUMARATE
     Route: 065
  108. VERAPAMIL HYDROCHLORIDE [Suspect]
     Active Substance: VERAPAMIL HYDROCHLORIDE
     Route: 065
  109. CHOLECALCIFEROL [Suspect]
     Active Substance: CHOLECALCIFEROL
     Route: 065
  110. CHOLECALCIFEROL [Suspect]
     Active Substance: CHOLECALCIFEROL
     Route: 065
  111. ALISKIREN [Suspect]
     Active Substance: ALISKIREN
     Route: 065
  112. PRAVASTATIN [Suspect]
     Active Substance: PRAVASTATIN
     Route: 065
  113. MIRTAZAPINE [Suspect]
     Active Substance: MIRTAZAPINE
     Route: 048
  114. GINKGO [Suspect]
     Active Substance: GINKGO
     Route: 065
  115. IMATINIB [Suspect]
     Active Substance: IMATINIB
     Route: 065
  116. NILOTINIB [Suspect]
     Active Substance: NILOTINIB
     Route: 065
  117. DOMPERIDONE [Suspect]
     Active Substance: DOMPERIDONE
     Route: 065
  118. VERAPAMIL [Suspect]
     Active Substance: VERAPAMIL HYDROCHLORIDE
     Route: 065
  119. GLUCOSAMINE [Suspect]
     Active Substance: GLUCOSAMINE
     Route: 065
  120. POTASSIUM IODIDE [Suspect]
     Active Substance: POTASSIUM IODIDE
     Route: 065
  121. TAMSULOSIN HYDROCHLORIDE [Suspect]
     Active Substance: TAMSULOSIN HYDROCHLORIDE
     Route: 065
  122. ASPIRIN\PENTAZOCINE [Suspect]
     Active Substance: ASPIRIN\PENTAZOCINE
     Route: 065
  123. CODEINE [Suspect]
     Active Substance: CODEINE
     Route: 065
  124. NITROGLYCERIN [Suspect]
     Active Substance: NITROGLYCERIN
     Route: 065
  125. ALENDRONATE SODIUM [Suspect]
     Active Substance: ALENDRONATE SODIUM
     Route: 065
  126. MYCOPHENOLATE SODIUM [Suspect]
     Active Substance: MYCOPHENOLATE SODIUM
     Route: 065
  127. PROPRANOLOL HYDROCHLORIDE [Suspect]
     Active Substance: PROPRANOLOL HYDROCHLORIDE
     Route: 065
  128. POVIDONE-IODINE [Suspect]
     Active Substance: POVIDONE-IODINE
     Route: 065
  129. CALTRATE [Suspect]
     Active Substance: CALCIUM CARBONATE
     Route: 065
  130. CELECOXIB [Suspect]
     Active Substance: CELECOXIB
  131. IODINE [Suspect]
     Active Substance: IODINE
     Route: 065
  132. NITROGLYCERIN [Suspect]
     Active Substance: NITROGLYCERIN
     Route: 065
  133. INDOMETHACIN [Suspect]
     Active Substance: INDOMETHACIN
     Route: 065
  134. MOTILIUM [Suspect]
     Active Substance: DOMPERIDONE
     Route: 065
  135. ESOMEPRAZOLE MAGNESIUM [Suspect]
     Active Substance: ESOMEPRAZOLE MAGNESIUM
  136. ALENDRONATE [Suspect]
     Active Substance: ALENDRONATE SODIUM
  137. MYCOPHENOLATE MOFETIL [Suspect]
     Active Substance: MYCOPHENOLATE MOFETIL
  138. IBANDRONATE SODIUM [Suspect]
     Active Substance: IBANDRONATE SODIUM
     Route: 065
  139. VENLAFAXINE HYDROCHLORIDE [Suspect]
     Active Substance: VENLAFAXINE HYDROCHLORIDE
     Route: 065
  140. PITAVASTATIN CALCIUM [Suspect]
     Active Substance: PITAVASTATIN CALCIUM
     Route: 065
  141. NORFLOXACIN [Suspect]
     Active Substance: NORFLOXACIN

REACTIONS (45)
  - Sepsis [Fatal]
  - Eye pain [Fatal]
  - Cardio-respiratory arrest [Fatal]
  - Altered state of consciousness [Fatal]
  - Fall [Fatal]
  - Haemorrhagic stroke [Fatal]
  - Headache [Fatal]
  - Drug interaction [Unknown]
  - Nausea [Unknown]
  - Ocular discomfort [Unknown]
  - Head discomfort [Unknown]
  - Blindness [Unknown]
  - Coma [Unknown]
  - Fatigue [Unknown]
  - Malaise [Unknown]
  - Tachycardia [Unknown]
  - Abdominal pain upper [Unknown]
  - Arthralgia [Unknown]
  - Ascites [Unknown]
  - Myalgia [Unknown]
  - Urinary tract disorder [Unknown]
  - Diplopia [Unknown]
  - Haematemesis [Unknown]
  - Presyncope [Unknown]
  - Blood pressure increased [Unknown]
  - Decreased appetite [Unknown]
  - Generalised oedema [Unknown]
  - Pruritus [Unknown]
  - Insomnia [Unknown]
  - Haematuria [Unknown]
  - Pyrexia [Unknown]
  - Diarrhoea [Unknown]
  - Vision blurred [Unknown]
  - Dizziness [Unknown]
  - Tinnitus [Unknown]
  - Amaurosis fugax [Unknown]
  - Vomiting [Unknown]
  - Somnolence [Unknown]
  - Asthenia [Unknown]
  - Dyspnoea [Unknown]
  - Photophobia [Unknown]
  - Chills [Unknown]
  - Cough [Unknown]
  - Abdominal pain [Unknown]
  - Syncope [Unknown]
